FAERS Safety Report 23351071 (Version 1)
Quarter: 2023Q4

REPORT INFORMATION
  Report Type: Spontaneous
  Country: BR (occurrence: BR)
  Receive Date: 20231229
  Receipt Date: 20231229
  Transmission Date: 20240109
  Serious: Yes (Life-Threatening)
  Sender: FDA-Public Use
  Company Number: BR-BAUSCHBL-2023BNL013574

PATIENT
  Age: 75 Year
  Sex: Male

DRUGS (12)
  1. GENTAMICIN [Suspect]
     Active Substance: GENTAMICIN
     Indication: Brain abscess
     Route: 065
  2. GENTAMICIN [Suspect]
     Active Substance: GENTAMICIN
     Indication: Listeriosis
  3. MEROPENEM [Suspect]
     Active Substance: MEROPENEM
     Indication: Brain abscess
     Route: 065
  4. MEROPENEM [Suspect]
     Active Substance: MEROPENEM
     Indication: Listeriosis
  5. AMPICILLIN [Suspect]
     Active Substance: AMPICILLIN
     Indication: Brain abscess
     Route: 065
  6. AMPICILLIN [Suspect]
     Active Substance: AMPICILLIN
     Indication: Listeriosis
  7. AMPICILLIN [Suspect]
     Active Substance: AMPICILLIN
     Indication: Meningitis listeria
  8. PREDNISONE [Concomitant]
     Active Substance: PREDNISONE
     Indication: Myasthenia gravis
     Dosage: 20 MILLIGRAMS AND 10 MILLIGRAMS OF PREDNISONE ON ALTERNATE DAYS
  9. PREDNISONE [Concomitant]
     Active Substance: PREDNISONE
     Dosage: 20 MILLIGRAMS AND 10 MILLIGRAMS OF PREDNISONE ON ALTERNATE DAYS
  10. PYRIDOSTIGMINE [Concomitant]
     Active Substance: PYRIDOSTIGMINE
     Indication: Myasthenia gravis
  11. PIPERACILLIN AND TAZOBACTAM [Concomitant]
     Active Substance: PIPERACILLIN SODIUM\TAZOBACTAM SODIUM
     Indication: Anti-infective therapy
  12. SULFAMETHOXAZOLE\TRIMETHOPRIM [Concomitant]
     Active Substance: SULFAMETHOXAZOLE\TRIMETHOPRIM
     Indication: Meningitis listeria

REACTIONS (1)
  - Therapy partial responder [Unknown]
